FAERS Safety Report 18349284 (Version 2)
Quarter: 2021Q1

REPORT INFORMATION
  Report Type: Other
  Country: CA (occurrence: CA)
  Receive Date: 20201006
  Receipt Date: 20210122
  Transmission Date: 20210419
  Serious: Yes (Other)
  Sender: FDA-Public Use
  Company Number: CA-ACCORD-204128

PATIENT
  Age: 60 Year
  Sex: Female

DRUGS (7)
  1. CISPLATIN. [Suspect]
     Active Substance: CISPLATIN
     Indication: SMALL CELL CARCINOMA
  2. ETOPOSIDE. [Suspect]
     Active Substance: ETOPOSIDE
     Indication: SMALL CELL CARCINOMA
  3. FRAGMIN [Suspect]
     Active Substance: DALTEPARIN SODIUM
     Indication: OVARIAN VEIN THROMBOSIS
     Route: 058
  4. CISPLATIN. [Suspect]
     Active Substance: CISPLATIN
     Indication: SMALL CELL CARCINOMA
     Dosage: FREQUENCY: CYCLICAL
  5. ETOPOSIDE. [Suspect]
     Active Substance: ETOPOSIDE
     Indication: SMALL CELL CARCINOMA
     Dosage: FREQUENCY: CYCLICAL
  6. FILGRASTIM [Suspect]
     Active Substance: FILGRASTIM
     Indication: SMALL CELL CARCINOMA
     Dosage: FREQUENCY: CYCLICAL
  7. FILGRASTIM [Suspect]
     Active Substance: FILGRASTIM
     Indication: SMALL CELL CARCINOMA

REACTIONS (7)
  - Off label use [Unknown]
  - Neuropathy peripheral [Recovered/Resolved]
  - Deafness [Recovered/Resolved]
  - Gastrointestinal bacterial overgrowth [Recovered/Resolved]
  - Ovarian vein thrombosis [Recovered/Resolved]
  - Gastroenteritis radiation [Recovered/Resolved]
  - Neutropenia [Recovered/Resolved]
